FAERS Safety Report 5622852-X (Version None)
Quarter: 2008Q1

REPORT INFORMATION
  Report Type: 
  Country: None (occurrence: None)
  Receive Date: 20080208
  Receipt Date: 20080208
  Transmission Date: 20080703
  Serious: No
  Sender: FDA-Public Use
  Company Number: None

PATIENT
  Age: 14 Year
  Sex: Male
  Weight: 55 kg

DRUGS (5)
  1. CEFTRIAXONE [Suspect]
     Dosage: 1GM Q24 IV
     Route: 042
     Dates: start: 20080120, end: 20080122
  2. ZITHROMAX [Concomitant]
  3. ALBUTEROL [Concomitant]
  4. PULMICORT [Concomitant]
  5. TORADOL [Concomitant]

REACTIONS (1)
  - RASH PRURITIC [None]
